FAERS Safety Report 12438610 (Version 1)
Quarter: 2016Q2

REPORT INFORMATION
  Report Type: Spontaneous
  Country: US (occurrence: US)
  Receive Date: 20160606
  Receipt Date: 20160606
  Transmission Date: 20160815
  Serious: Yes (Other)
  Sender: FDA-Public Use
  Company Number: US-GLAXOSMITHKLINE-US2016GSK071381

PATIENT
  Age: 69 Year
  Sex: Male

DRUGS (3)
  1. TANZEUM [Suspect]
     Active Substance: ALBIGLUTIDE
     Dosage: 50 MG, U
     Dates: start: 201603, end: 201604
  2. TANZEUM [Suspect]
     Active Substance: ALBIGLUTIDE
     Indication: TYPE 2 DIABETES MELLITUS
     Dosage: 30 MG, U
     Route: 042
     Dates: start: 201512, end: 201603
  3. BYDUREON [Suspect]
     Active Substance: EXENATIDE
     Indication: TYPE 2 DIABETES MELLITUS
     Dosage: 2 MG, WE
     Dates: start: 201604

REACTIONS (5)
  - Malaise [Unknown]
  - Diabetes mellitus inadequate control [Not Recovered/Not Resolved]
  - Rash [Unknown]
  - Induration [Unknown]
  - Pruritus [Unknown]

NARRATIVE: CASE EVENT DATE: 20160510
